FAERS Safety Report 7016965-8 (Version None)
Quarter: 2010Q3

REPORT INFORMATION
  Report Type: 
  Country: None (occurrence: None)
  Receive Date: 20100927
  Receipt Date: 20100816
  Transmission Date: 20110219
  Serious: No
  Sender: FDA-Public Use
  Company Number: US-PFIZER INC-2010106518

PATIENT
  Sex: Female

DRUGS (2)
  1. BENZYLPENICILLIN POTASSIUM [Suspect]
     Dosage: UNK
  2. SYNTHROID [Concomitant]
     Dosage: 0.125 MG, UNK

REACTIONS (1)
  - DRUG HYPERSENSITIVITY [None]
